FAERS Safety Report 14962881 (Version 1)
Quarter: 2018Q2

REPORT INFORMATION
  Report Type: Spontaneous
  Country: DE (occurrence: DE)
  Receive Date: 20180601
  Receipt Date: 20180601
  Transmission Date: 20180711
  Serious: Yes (Other)
  Sender: FDA-Public Use
  Company Number: PHHY2018DE011852

PATIENT
  Age: 84 Year
  Sex: Male

DRUGS (2)
  1. CLINDAHEXAL [Suspect]
     Active Substance: CLINDAMYCIN HYDROCHLORIDE
     Dosage: 600 MG, BID
     Route: 065
     Dates: start: 20180524
  2. CLINDAHEXAL [Suspect]
     Active Substance: CLINDAMYCIN HYDROCHLORIDE
     Indication: DENTAL IMPLANTATION
     Dosage: 600 MG, TID
     Route: 065
     Dates: start: 20180522, end: 20180523

REACTIONS (3)
  - Arrhythmia [Unknown]
  - Head discomfort [Unknown]
  - Oral discomfort [Unknown]
